FAERS Safety Report 24874976 (Version 1)
Quarter: 2025Q1

REPORT INFORMATION
  Report Type: Spontaneous
  Country: US (occurrence: US)
  Receive Date: 20250122
  Receipt Date: 20250122
  Transmission Date: 20250409
  Serious: No
  Sender: INCYTE
  Company Number: US-EVENT-001213

PATIENT

DRUGS (2)
  1. JAKAFI [Suspect]
     Active Substance: RUXOLITINIB
     Indication: Inflammatory bowel disease
     Dosage: 10 MILLIGRAM, BID
     Route: 048
     Dates: start: 20240916
  2. CHILDREN^S MULTIVITAMIN [Concomitant]
     Indication: Product used for unknown indication
     Route: 065

REACTIONS (2)
  - Contusion [Unknown]
  - Off label use [Not Recovered/Not Resolved]

NARRATIVE: CASE EVENT DATE: 20240916
